FAERS Safety Report 6759463-9 (Version None)
Quarter: 2010Q2

REPORT INFORMATION
  Report Type: 
  Country: None (occurrence: None)
  Receive Date: 20100603
  Receipt Date: 20100506
  Transmission Date: 20101027
  Serious: Yes (Death, Hospitalization, Other)
  Sender: FDA-Public Use
  Company Number: A-NJ2009-23619

PATIENT
  Age: 79 Year
  Sex: Female
  Weight: 48 kg

DRUGS (14)
  1. TRACLEER [Suspect]
     Indication: PULMONARY ARTERIAL HYPERTENSION
     Dosage: 62.5 MG, BID, ORAL; 125 MG, BID, ORAL; 62.5 MG, BID, ORAL
     Route: 048
     Dates: start: 20040101, end: 20040513
  2. TRACLEER [Suspect]
     Indication: PULMONARY ARTERIAL HYPERTENSION
     Dosage: 62.5 MG, BID, ORAL; 125 MG, BID, ORAL; 62.5 MG, BID, ORAL
     Route: 048
     Dates: start: 20040514, end: 20090101
  3. TRACLEER [Suspect]
     Indication: PULMONARY ARTERIAL HYPERTENSION
     Dosage: 62.5 MG, BID, ORAL; 125 MG, BID, ORAL; 62.5 MG, BID, ORAL
     Route: 048
     Dates: start: 20090101, end: 20100412
  4. POTASSIUM CHLORIDE [Concomitant]
  5. LASIX [Concomitant]
  6. PRILOSEC (OMEPRAZOLE) [Concomitant]
  7. REVATIO [Concomitant]
  8. SYNTHROID [Concomitant]
  9. ZAROXOLYN [Concomitant]
  10. ASPIRIN [Concomitant]
  11. ATROVENT [Concomitant]
  12. OXYGEN (OXYGEN) [Concomitant]
  13. SINEMET [Concomitant]
  14. TYLENOL (PARACETAMOL) [Concomitant]

REACTIONS (10)
  - BLOOD ALKALINE PHOSPHATASE INCREASED [None]
  - BRAIN NATRIURETIC PEPTIDE INCREASED [None]
  - FALL [None]
  - FRACTURED SACRUM [None]
  - HIP FRACTURE [None]
  - HYPOXIA [None]
  - PELVIC MASS [None]
  - PULMONARY HYPERTENSION [None]
  - SARCOMA [None]
  - URINARY RETENTION [None]
